FAERS Safety Report 23007910 (Version 4)
Quarter: 2024Q4

REPORT INFORMATION
  Report Type: Spontaneous
  Country: US (occurrence: US)
  Receive Date: 20230929
  Receipt Date: 20241011
  Transmission Date: 20250114
  Serious: Yes (Other)
  Sender: ELI LILLY AND CO
  Company Number: US-ELI_LILLY_AND_COMPANY-US202309015058

PATIENT
  Age: 68 Year
  Sex: Female

DRUGS (2)
  1. VERZENIO [Suspect]
     Active Substance: ABEMACICLIB
     Indication: Breast cancer female
     Dosage: 150 MG, BID
     Route: 048
  2. FASLODEX [Suspect]
     Active Substance: FULVESTRANT
     Indication: Product used for unknown indication
     Dosage: UNK UNK, UNKNOWN
     Route: 065

REACTIONS (16)
  - Oedema peripheral [Unknown]
  - Thrombosis [Unknown]
  - Malignant neoplasm progression [Unknown]
  - Injection site mass [Unknown]
  - Injection site pain [Unknown]
  - Injection site pruritus [Unknown]
  - Vision blurred [Unknown]
  - Myalgia [Unknown]
  - Arthritis [Unknown]
  - Blood glucose increased [Unknown]
  - Lung disorder [Unknown]
  - Osteoporosis [Unknown]
  - Cough [Unknown]
  - Dyspnoea [Unknown]
  - Diarrhoea [Unknown]
  - Fatigue [Unknown]
